FAERS Safety Report 23995573 (Version 1)
Quarter: 2024Q2

REPORT INFORMATION
  Report Type: Report from Study
  Country: US (occurrence: None)
  Receive Date: 20240620
  Receipt Date: 20240620
  Transmission Date: 20240716
  Serious: Yes (Hospitalization, Other)
  Sender: FDA-Public Use
  Company Number: 2024A137892

PATIENT
  Age: 23080 Day
  Sex: Female

DRUGS (2)
  1. TAGRISSO [Suspect]
     Active Substance: OSIMERTINIB
     Indication: Lung neoplasm malignant
     Route: 048
     Dates: start: 202309
  2. XGEVA [Concomitant]
     Active Substance: DENOSUMAB
     Indication: Product used for unknown indication

REACTIONS (11)
  - Road traffic accident [Unknown]
  - Neck mass [Unknown]
  - Pleural effusion [Unknown]
  - Neck pain [Unknown]
  - Malaise [Unknown]
  - Dizziness [Unknown]
  - Burning sensation [Unknown]
  - Onychomadesis [Unknown]
  - Epistaxis [Unknown]
  - Hair texture abnormal [Unknown]
  - Pain in extremity [Unknown]

NARRATIVE: CASE EVENT DATE: 20240612
